FAERS Safety Report 11342395 (Version 1)
Quarter: 2015Q3

REPORT INFORMATION
  Report Type: Spontaneous
  Country: US (occurrence: US)
  Receive Date: 20150805
  Receipt Date: 20150805
  Transmission Date: 20151125
  Serious: No
  Sender: FDA-Public Use
  Company Number: US-TAKEDA-2015TUS010110

PATIENT
  Sex: Female
  Weight: 79.37 kg

DRUGS (1)
  1. COLCHICINE. [Suspect]
     Active Substance: COLCHICINE
     Indication: PAIN
     Dosage: 0.6 MG, UNK
     Route: 048
     Dates: start: 20150723, end: 201507

REACTIONS (1)
  - Diarrhoea [Recovering/Resolving]
